FAERS Safety Report 16312790 (Version 2)
Quarter: 2019Q2

REPORT INFORMATION
  Report Type: Report from Study
  Country: None (occurrence: US)
  Receive Date: 20190515
  Receipt Date: 20190622
  Transmission Date: 20190711
  Serious: Yes (Other)
  Sender: FDA-Public Use
  Company Number: US-ABBVIE-19S-163-2783326-00

PATIENT
  Age: 70 Year
  Sex: Female

DRUGS (1)
  1. CREON [Suspect]
     Active Substance: PANCRELIPASE AMYLASE\PANCRELIPASE LIPASE\PANCRELIPASE PROTEASE
     Indication: PRODUCT USED FOR UNKNOWN INDICATION
     Route: 048

REACTIONS (7)
  - Female sterilisation [Unknown]
  - Adenoidectomy [Unknown]
  - Tonsillectomy [Unknown]
  - Pancreatic carcinoma [Unknown]
  - Uterine dilation and curettage [Unknown]
  - Cholecystectomy [Unknown]
  - Dental care [Unknown]

NARRATIVE: CASE EVENT DATE: 1976
